FAERS Safety Report 23264688 (Version 1)
Quarter: 2023Q4

REPORT INFORMATION
  Report Type: Spontaneous
  Country: CA (occurrence: CA)
  Receive Date: 20231205
  Receipt Date: 20231205
  Transmission Date: 20240110
  Serious: Yes (Life-Threatening, Hospitalization, Other)
  Sender: FDA-Public Use
  Company Number: CA-BAXTER-2023BAX037319

PATIENT
  Age: 3 Year
  Sex: Female

DRUGS (2)
  1. CYCLOPHOSPHAMIDE [Suspect]
     Active Substance: CYCLOPHOSPHAMIDE
     Indication: Nephroblastoma
     Dosage: 220.0 MG, 1 EVERY 1 DAYS, DOSAGE FORM: NOT SPECIFIED
     Route: 042
  2. ETOPOSIDE [Suspect]
     Active Substance: ETOPOSIDE
     Indication: Nephroblastoma
     Dosage: 56.0 MG, 1 EVERY 1 DAYS, DOSAGE FORM: NOT SPECIFIED
     Route: 042

REACTIONS (2)
  - SARS-CoV-2 test positive [Recovered/Resolved]
  - Febrile neutropenia [Recovered/Resolved]
